FAERS Safety Report 7312205-0 (Version None)
Quarter: 2011Q1

REPORT INFORMATION
  Report Type: 
  Country: None (occurrence: None)
  Receive Date: 20110224
  Receipt Date: 20110217
  Transmission Date: 20110831
  Serious: Yes (Hospitalization)
  Sender: FDA-Public Use
  Company Number: A0892680A

PATIENT
  Age: 51 Year
  Sex: Male

DRUGS (2)
  1. AVANDIA [Suspect]
     Dosage: 4MG TWICE PER DAY
     Route: 048
     Dates: start: 20060202, end: 20100305
  2. AVANDAMET [Suspect]
     Route: 048
     Dates: start: 20031101, end: 20051107

REACTIONS (3)
  - DIZZINESS [None]
  - WEIGHT INCREASED [None]
  - CARDIAC FAILURE CONGESTIVE [None]
